FAERS Safety Report 23955910 (Version 1)
Quarter: 2024Q2

REPORT INFORMATION
  Report Type: Spontaneous
  Country: US (occurrence: None)
  Receive Date: 20240607
  Receipt Date: 20240607
  Transmission Date: 20240716
  Serious: Yes (Hospitalization)
  Sender: FDA-Public Use
  Company Number: None

PATIENT
  Age: 53 Year
  Sex: Female

DRUGS (1)
  1. EPIDIOLEX [Suspect]
     Active Substance: CANNABIDIOL
     Indication: Lennox-Gastaut syndrome
     Dosage: 100MG BID ORAL
     Route: 048
     Dates: start: 20220314

REACTIONS (2)
  - Skin laceration [None]
  - Condition aggravated [None]

NARRATIVE: CASE EVENT DATE: 20240522
